FAERS Safety Report 6504132-3 (Version None)
Quarter: 2009Q4

REPORT INFORMATION
  Report Type: 
  Country: None (occurrence: None)
  Receive Date: 20091217
  Receipt Date: 20091214
  Transmission Date: 20100525
  Serious: Yes (Other)
  Sender: FDA-Public Use
  Company Number: CHPA2009US23546

PATIENT
  Age: 54 Year
  Sex: Female
  Weight: 99.32 kg

DRUGS (6)
  1. WALMART/EQUATE (NCH) [Suspect]
     Indication: SMOKING CESSATION THERAPY
     Dosage: 21 MG, QD
     Route: 062
     Dates: start: 20090301
  2. WALMART/EQUATE (NCH) [Suspect]
     Dosage: 14 MG, QD
     Route: 062
     Dates: start: 20090101, end: 20090101
  3. WALMART/EQUATE (NCH) [Suspect]
     Dosage: 7 MG, QD
     Route: 062
     Dates: start: 20090101
  4. WALMART/EQUATE (NCH) [Suspect]
     Dosage: 21 MG, QD
     Route: 062
  5. WALMART/EQUATE (NCH) [Suspect]
     Dosage: 14 MG, QD
  6. WALMART/EQUATE (NCH) [Suspect]
     Dosage: 7 MG, QD

REACTIONS (3)
  - ARTHRITIS [None]
  - KNEE OPERATION [None]
  - WEIGHT INCREASED [None]
